FAERS Safety Report 14056024 (Version 1)
Quarter: 2017Q4

REPORT INFORMATION
  Report Type: Spontaneous
  Country: GB (occurrence: GB)
  Receive Date: 20171006
  Receipt Date: 20171006
  Transmission Date: 20180321
  Serious: Yes (Life-Threatening, Hospitalization)
  Sender: FDA-Public Use
  Company Number: GB-ALKEM LABORATORIES LIMITED-GB-ALKEM-2017-00617

PATIENT

DRUGS (2)
  1. DULOXETINE HYDROCHLORIDE. [Suspect]
     Active Substance: DULOXETINE HYDROCHLORIDE
     Indication: BIPOLAR DISORDER
     Dosage: 60 MG, UNK
     Route: 064
     Dates: start: 20130504
  2. QUETIAPINE FUMARATE. [Suspect]
     Active Substance: QUETIAPINE FUMARATE
     Indication: BIPOLAR DISORDER
     Dosage: 300 MG, UNK
     Route: 064
     Dates: start: 20130601

REACTIONS (4)
  - Speech disorder [Unknown]
  - Pyrexia [Unknown]
  - Convulsion neonatal [Recovered/Resolved with Sequelae]
  - Oxygen saturation decreased [Unknown]

NARRATIVE: CASE EVENT DATE: 20150510
